FAERS Safety Report 6415702-5 (Version None)
Quarter: 2009Q4

REPORT INFORMATION
  Report Type: 
  Country: None (occurrence: None)
  Receive Date: 20091022
  Receipt Date: 20091015
  Transmission Date: 20100525
  Serious: Yes (Hospitalization)
  Sender: FDA-Public Use
  Company Number: 2009SP030810

PATIENT
  Age: 41 Year
  Sex: Female

DRUGS (1)
  1. NUVARING [Suspect]
     Indication: DRUG USE FOR UNKNOWN INDICATION
     Dates: start: 20040901, end: 20080301

REACTIONS (8)
  - DYSPNOEA [None]
  - HEADACHE [None]
  - INTRACRANIAL VENOUS SINUS THROMBOSIS [None]
  - JUGULAR VEIN THROMBOSIS [None]
  - NAUSEA [None]
  - TRANSVERSE SINUS THROMBOSIS [None]
  - VAGINAL INFECTION [None]
  - VOMITING [None]
